FAERS Safety Report 21966419 (Version 2)
Quarter: 2023Q1

REPORT INFORMATION
  Report Type: Spontaneous
  Country: US (occurrence: US)
  Receive Date: 20230208
  Receipt Date: 20230215
  Transmission Date: 20230418
  Serious: Yes (Life-Threatening, Hospitalization, Other)
  Sender: FDA-Public Use
  Company Number: US-drreddys-SPO/USA/23/0160712

PATIENT
  Age: 60 Year
  Sex: Female

DRUGS (3)
  1. DOXORUBICIN HYDROCHLORIDE [Suspect]
     Active Substance: DOXORUBICIN HYDROCHLORIDE
     Indication: Breast cancer female
     Dosage: LAST DOSE OF DOXORUBICIN WAS 20 YEARS PRIOR TO PRESENTATION
  2. LEVOTHYROXINE SODIUM [Concomitant]
     Active Substance: LEVOTHYROXINE SODIUM
     Indication: Hypothyroidism
  3. FLUOROURACIL [Concomitant]
     Active Substance: FLUOROURACIL
     Indication: Breast cancer female

REACTIONS (9)
  - Cardiac failure [Recovering/Resolving]
  - Coronary artery disease [Recovering/Resolving]
  - Mitral valve incompetence [Recovering/Resolving]
  - Aortic valve incompetence [Recovering/Resolving]
  - Cardiomegaly [Recovering/Resolving]
  - Pulmonary valve incompetence [Recovering/Resolving]
  - Pulmonary oedema [Recovering/Resolving]
  - Cardiomyopathy [Recovering/Resolving]
  - Product use in unapproved indication [Unknown]
